FAERS Safety Report 6837816-8 (Version None)
Quarter: 2010Q3

REPORT INFORMATION
  Report Type: 
  Country: None (occurrence: None)
  Receive Date: 20100713
  Receipt Date: 20070522
  Transmission Date: 20110219
  Serious: No
  Sender: FDA-Public Use
  Company Number: US-PFIZER INC-2007042345

PATIENT
  Sex: Female

DRUGS (2)
  1. CHANTIX [Suspect]
     Dates: start: 20070516
  2. ALL OTHER THERAPEUTIC PRODUCTS [Concomitant]
     Indication: ASTHMA

REACTIONS (2)
  - ASTHMA [None]
  - CHEST DISCOMFORT [None]
